FAERS Safety Report 8136686-8 (Version None)
Quarter: 2012Q1

REPORT INFORMATION
  Report Type: 
  Country: None (occurrence: None)
  Receive Date: 20120214
  Receipt Date: 20120201
  Transmission Date: 20120608
  Serious: Yes (Hospitalization, Other)
  Sender: FDA-Public Use
  Company Number: US-MYLANLABS-2012S1002835

PATIENT
  Age: 76 Year
  Sex: Female

DRUGS (22)
  1. ROCEPHIN [Concomitant]
  2. COUMADIN [Concomitant]
  3. GUAIFENESIN [Concomitant]
  4. FLONASE [Concomitant]
  5. OMNICEF /00497602/ [Concomitant]
  6. DIOVAN [Concomitant]
  7. TOPROL-XL [Concomitant]
  8. VITAMIN D [Concomitant]
  9. XOPENEX [Concomitant]
  10. POTASSIUM [Concomitant]
  11. AMARYL [Concomitant]
  12. DIGOXIN [Suspect]
     Route: 048
  13. CARDIZEM [Concomitant]
  14. LOVENOX [Concomitant]
  15. PROTONIX [Concomitant]
  16. SYMBICORT [Concomitant]
  17. THEOPHYLLINE [Concomitant]
  18. LASIX [Concomitant]
  19. RESTORIL [Concomitant]
  20. CALCIUM [Concomitant]
  21. GLIMEPIRIDE [Concomitant]
  22. ATROVENT [Concomitant]

REACTIONS (44)
  - MALAISE [None]
  - PNEUMONIA [None]
  - DECREASED APPETITE [None]
  - CHRONIC OBSTRUCTIVE PULMONARY DISEASE [None]
  - HAEMORRHOIDS [None]
  - CHOLECYSTECTOMY [None]
  - CHOLELITHIASIS [None]
  - CARDIOVASCULAR DISORDER [None]
  - GASTROOESOPHAGEAL REFLUX DISEASE [None]
  - HYPERTENSION [None]
  - HYPOTENSION [None]
  - RENAL FAILURE [None]
  - CONTUSION [None]
  - NAUSEA [None]
  - DIARRHOEA [None]
  - GASTROENTERITIS [None]
  - ACTIVATED PARTIAL THROMBOPLASTIN TIME PROLONGED [None]
  - ILL-DEFINED DISORDER [None]
  - RASH [None]
  - PROTHROMBIN LEVEL INCREASED [None]
  - TOXICITY TO VARIOUS AGENTS [None]
  - HEART RATE INCREASED [None]
  - FEELING ABNORMAL [None]
  - CHOLECYSTITIS CHRONIC [None]
  - DYSPNOEA [None]
  - SYNCOPE [None]
  - SKIN INJURY [None]
  - ABDOMINAL DISTENSION [None]
  - CATARACT [None]
  - ADVERSE DRUG REACTION [None]
  - GENERAL PHYSICAL HEALTH DETERIORATION [None]
  - INJURY [None]
  - BLOOD PRESSURE DECREASED [None]
  - INTERNATIONAL NORMALISED RATIO INCREASED [None]
  - BLADDER CANCER [None]
  - BRONCHITIS CHRONIC [None]
  - COUGH [None]
  - BLOOD PRESSURE INCREASED [None]
  - RECTAL HAEMORRHAGE [None]
  - ATRIAL FIBRILLATION [None]
  - PRESYNCOPE [None]
  - CARDIAC FAILURE CONGESTIVE [None]
  - DYSPEPSIA [None]
  - CAROTID ARTERY STENOSIS [None]
